FAERS Safety Report 6816927-7 (Version None)
Quarter: 2010Q3

REPORT INFORMATION
  Report Type: 
  Country: None (occurrence: None)
  Receive Date: 20100706
  Receipt Date: 20100622
  Transmission Date: 20110219
  Serious: Yes (Hospitalization)
  Sender: FDA-Public Use
  Company Number: CH-SANOFI-AVENTIS-2010SA036138

PATIENT
  Age: 68 Year
  Sex: Male

DRUGS (9)
  1. ELOXATIN [Suspect]
     Route: 042
     Dates: start: 20100215, end: 20100215
  2. ELOXATIN [Suspect]
     Route: 042
     Dates: start: 20100401, end: 20100401
  3. FLUOROURACIL [Suspect]
     Route: 042
     Dates: start: 20100215, end: 20100215
  4. FLUOROURACIL [Suspect]
     Route: 042
     Dates: start: 20100401, end: 20100401
  5. FOLINIC ACID [Suspect]
     Route: 042
     Dates: start: 20100215, end: 20100215
  6. FOLINIC ACID [Suspect]
     Route: 042
     Dates: start: 20100401, end: 20100401
  7. AVASTIN [Suspect]
     Route: 042
     Dates: start: 20100215, end: 20100215
  8. AVASTIN [Suspect]
     Route: 042
     Dates: start: 20100401, end: 20100401
  9. ENALAPRILAT [Concomitant]
     Indication: ESSENTIAL HYPERTENSION
     Route: 048

REACTIONS (3)
  - ABDOMINAL ABSCESS [None]
  - INTESTINAL FISTULA [None]
  - INTESTINAL PERFORATION [None]
